FAERS Safety Report 7474088-8 (Version None)
Quarter: 2011Q2

REPORT INFORMATION
  Report Type: 
  Country: None (occurrence: None)
  Receive Date: 20110511
  Receipt Date: 20110505
  Transmission Date: 20111010
  Serious: Yes (Hospitalization)
  Sender: FDA-Public Use
  Company Number: DE-PFIZER INC-2009181086

PATIENT
  Age: 69 Year
  Sex: Female

DRUGS (6)
  1. DOXAZOSIN MESYLATE [Suspect]
     Indication: HYPERTENSION
     Dosage: 2 MG, 1X/DAY
     Route: 048
  2. METOPROLOL SUCCINATE [Interacting]
     Dosage: 47.5 MG, 1X/DAY
     Route: 048
     Dates: end: 20090101
  3. RAMIPRIL [Interacting]
     Dosage: 5 MG, 2X/DAY
     Route: 048
  4. ACETYLSALICYLIC ACID [Concomitant]
     Indication: PERIPHERAL ARTERIAL OCCLUSIVE DISEASE
     Dosage: 100 MG, 1X/DAY
     Route: 048
  5. METOPROLOL SUCCINATE [Interacting]
     Indication: HYPERTENSION
     Dosage: UNK
     Route: 048
     Dates: end: 20090101
  6. AMLODIPINE/VALSARTAN [Interacting]
     Indication: HYPERTENSION
     Dosage: 1 DF (WITH 10 MG AMLODIPINE AND 160 MG VALSARTAN), 1X/DAY
     Route: 048

REACTIONS (2)
  - SINUS BRADYCARDIA [None]
  - SYNCOPE [None]
